FAERS Safety Report 5224059-7 (Version None)
Quarter: 2007Q1

REPORT INFORMATION
  Report Type: 
  Country: None (occurrence: None)
  Receive Date: 20070130
  Receipt Date: 20070122
  Transmission Date: 20070707
  Serious: Yes (Disabling)
  Sender: FDA-Public Use
  Company Number: ZAWYE295223JAN07

PATIENT
  Sex: Female

DRUGS (2)
  1. LOETTE [Suspect]
     Indication: ORAL CONTRACEPTION
     Dosage: 1 TABLET DAILY
     Route: 048
  2. LOETTE [Suspect]
     Indication: DYSMENORRHOEA

REACTIONS (1)
  - CARPAL TUNNEL SYNDROME [None]
